FAERS Safety Report 7183184-4 (Version None)
Quarter: 2010Q4

REPORT INFORMATION
  Report Type: 
  Country: None (occurrence: None)
  Receive Date: 20101220
  Receipt Date: 20101220
  Transmission Date: 20110411
  Serious: Yes (Hospitalization)
  Sender: FDA-Public Use
  Company Number: None

PATIENT
  Age: 80 Year
  Sex: Female
  Weight: 50 kg

DRUGS (15)
  1. ASPIRIN [Suspect]
     Indication: CEREBROVASCULAR ACCIDENT
     Dosage: 81 MG DAILY PO CHRONIC
     Route: 048
  2. ZYPREXA [Concomitant]
  3. POTASSIUM CHLORIDE [Concomitant]
  4. FLANNEF [Concomitant]
  5. LASIX [Concomitant]
  6. PREVACID [Concomitant]
  7. ACTOS [Concomitant]
  8. DILTIAZEM HCL [Concomitant]
  9. HUMALOG [Concomitant]
  10. PROAMATINE [Concomitant]
  11. SPIRONOLACTONE [Concomitant]
  12. LANTUS [Concomitant]
  13. TRANSDERM SCOPOLOMINE [Concomitant]
  14. VIT B12 [Concomitant]
  15. EFFEXOR XR [Concomitant]

REACTIONS (5)
  - CEREBROVASCULAR ACCIDENT [None]
  - CEREBROVASCULAR STENOSIS [None]
  - GASTRITIS EROSIVE [None]
  - HAEMATEMESIS [None]
  - HIATUS HERNIA [None]
